FAERS Safety Report 9011427 (Version 1)
Quarter: 2013Q1

REPORT INFORMATION
  Report Type: Spontaneous
  Country: US (occurrence: US)
  Receive Date: 20130108
  Receipt Date: 20130108
  Transmission Date: 20140127
  Serious: No
  Sender: FDA-Public Use
  Company Number: US-BAYER-2012-134418

PATIENT
  Sex: Female
  Weight: 79 kg

DRUGS (5)
  1. BETASERON [Suspect]
     Dosage: 0.25 MG, QOD
     Route: 058
     Dates: start: 2003
  2. XANAX [Concomitant]
  3. LEXAPRO [Concomitant]
  4. ONE DAILY [VIT C,B12,D2,B9,FE+,B3,B6,RETINOL,B2,B1 HCL,VIT E,ZN+] [Concomitant]
  5. ADVIL [Concomitant]

REACTIONS (1)
  - Pain [Unknown]
